FAERS Safety Report 7454620-0 (Version None)
Quarter: 2011Q2

REPORT INFORMATION
  Report Type: 
  Country: None (occurrence: None)
  Receive Date: 20110503
  Receipt Date: 20100401
  Transmission Date: 20111010
  Serious: No
  Sender: FDA-Public Use
  Company Number: US-PFIZER INC-2009251111

PATIENT
  Sex: Female
  Weight: 66.667 kg

DRUGS (4)
  1. MEDROXYPROGESTERONE ACETATE [Suspect]
     Indication: MIGRAINE PROPHYLAXIS
     Dosage: 150 MG, UNK
     Route: 030
     Dates: start: 20090629
  2. MEDROXYPROGESTERONE ACETATE [Suspect]
     Indication: MENSTRUATION IRREGULAR
  3. NECON [Concomitant]
     Dosage: ONE TABLET ONCE DAILY
  4. MEDROXYPROGESTERONE ACETATE [Suspect]
     Indication: OFF LABEL USE

REACTIONS (2)
  - DRUG INEFFECTIVE FOR UNAPPROVED INDICATION [None]
  - METRORRHAGIA [None]
